FAERS Safety Report 22103489 (Version 1)
Quarter: 2023Q1

REPORT INFORMATION
  Report Type: Spontaneous
  Country: US (occurrence: US)
  Receive Date: 20230316
  Receipt Date: 20230316
  Transmission Date: 20230417
  Serious: No
  Sender: FDA-Public Use
  Company Number: US-PFIZER INC-202300110141

PATIENT
  Sex: Female

DRUGS (1)
  1. PAXLOVID [Suspect]
     Active Substance: NIRMATRELVIR\RITONAVIR
     Indication: COVID-19 treatment
     Dosage: UNK
     Dates: start: 20230307, end: 20230311

REACTIONS (7)
  - Headache [Not Recovered/Not Resolved]
  - Dizziness [Unknown]
  - Cold sweat [Unknown]
  - Vertigo [Unknown]
  - Nausea [Unknown]
  - Blood pressure systolic increased [Unknown]
  - Heart rate decreased [Unknown]

NARRATIVE: CASE EVENT DATE: 20230308
